FAERS Safety Report 7704502-1 (Version None)
Quarter: 2011Q3

REPORT INFORMATION
  Report Type: 
  Country: None (occurrence: None)
  Receive Date: 20110823
  Receipt Date: 20110817
  Transmission Date: 20111222
  Serious: Yes (Death, Hospitalization, Other)
  Sender: FDA-Public Use
  Company Number: GB-ELI_LILLY_AND_COMPANY-GB201107007250

PATIENT
  Age: 52 Year
  Sex: Male
  Weight: 93.5 kg

DRUGS (4)
  1. METFORMIN HCL [Concomitant]
     Dosage: UNK
     Dates: end: 20100801
  2. LEVEMIR [Concomitant]
  3. BYETTA [Suspect]
     Indication: TYPE 2 DIABETES MELLITUS
     Dosage: UNK, UNKNOWN
     Route: 058
     Dates: start: 20080425, end: 20100825
  4. SIMVASTATIN [Concomitant]
     Dosage: 40 MG, UNK
     Dates: end: 20110801

REACTIONS (2)
  - PANCREATIC NEUROENDOCRINE TUMOUR METASTATIC [None]
  - OFF LABEL USE [None]
